FAERS Safety Report 7643713-0 (Version None)
Quarter: 2011Q3

REPORT INFORMATION
  Report Type: 
  Country: None (occurrence: None)
  Receive Date: 20110722
  Receipt Date: 20110713
  Transmission Date: 20111222
  Serious: Yes (Other)
  Sender: FDA-Public Use
  Company Number: US-001869

PATIENT
  Sex: Male
  Weight: 77.3 kg

DRUGS (1)
  1. KUVAN [Suspect]
     Indication: PHENYLKETONURIA
     Dosage: 1500 MG QD ORAL
     Route: 048
     Dates: start: 20090829

REACTIONS (1)
  - MALIGNANT MELANOMA [None]
